FAERS Safety Report 5996485-X (Version None)
Quarter: 2008Q4

REPORT INFORMATION
  Report Type: 
  Country: None (occurrence: None)
  Receive Date: 20081212
  Receipt Date: 20080620
  Transmission Date: 20090506
  Serious: No
  Sender: FDA-Public Use
  Company Number: US-AMGEN-KDL288874

PATIENT
  Sex: Male
  Weight: 86.3 kg

DRUGS (8)
  1. ENBREL [Suspect]
     Indication: PSORIASIS
  2. ENBREL [Suspect]
     Indication: PSORIATIC ARTHROPATHY
  3. METFORMIN HCL [Concomitant]
     Route: 048
  4. GLIPIZIDE [Concomitant]
     Route: 048
  5. LEVOTHYROXINE SODIUM [Concomitant]
     Route: 048
  6. RAPTIVA [Concomitant]
     Dates: start: 20080301
  7. AMOXICILLIN [Concomitant]
     Route: 048
  8. UNSPECIFIED MEDICATION [Concomitant]

REACTIONS (2)
  - DISSOCIATION [None]
  - HYPERSENSITIVITY [None]
